FAERS Safety Report 11912581 (Version 2)
Quarter: 2016Q1

REPORT INFORMATION
  Report Type: Report from Study
  Country: US (occurrence: US)
  Receive Date: 20160113
  Receipt Date: 20160307
  Transmission Date: 20160526
  Serious: No
  Sender: FDA-Public Use
  Company Number: PHEH2016US000839

PATIENT
  Sex: Male
  Weight: 54.42 kg

DRUGS (1)
  1. GILENYA [Suspect]
     Active Substance: FINGOLIMOD HYDROCHLORIDE
     Indication: MULTIPLE SCLEROSIS
     Dosage: 0.5 MG, QD
     Route: 048
     Dates: start: 20150901

REACTIONS (5)
  - Pallor [Unknown]
  - Hyperhidrosis [Unknown]
  - Blood pressure decreased [Unknown]
  - Vomiting [Unknown]
  - Nausea [Unknown]
